FAERS Safety Report 6058423-3 (Version None)
Quarter: 2009Q1

REPORT INFORMATION
  Report Type: 
  Country: None (occurrence: None)
  Receive Date: 20090130
  Receipt Date: 20090122
  Transmission Date: 20090719
  Serious: Yes (Hospitalization)
  Sender: FDA-Public Use
  Company Number: FR-JNJFOC-20090105254

PATIENT
  Age: 84 Year
  Sex: Female

DRUGS (12)
  1. TAVANIC [Suspect]
     Indication: CARDIOPULMONARY FAILURE
     Route: 048
  2. ALLOPURINOL [Suspect]
     Indication: RENAL FAILURE
     Route: 048
  3. CIFLOX [Suspect]
     Indication: CARDIOPULMONARY FAILURE
     Route: 048
  4. TRIFLUCAN [Suspect]
     Indication: CARDIOPULMONARY FAILURE
     Route: 048
  5. PRAVASTATIN [Concomitant]
     Route: 048
  6. OMEPRAZOLE [Concomitant]
     Route: 048
  7. KARDEGIC [Concomitant]
     Route: 048
  8. NOVOLOG MIX 70/30 [Concomitant]
     Route: 065
  9. LASILIX [Concomitant]
     Route: 065
  10. VENTOLIN [Concomitant]
     Route: 055
  11. FUNGIZONE [Concomitant]
     Route: 065
  12. ACEBUTOLOL HYDROCHLORIDE [Concomitant]
     Route: 048

REACTIONS (3)
  - DRUG RASH WITH EOSINOPHILIA AND SYSTEMIC SYMPTOMS [None]
  - EOSINOPHILIA [None]
  - RENAL FAILURE [None]
